FAERS Safety Report 10483903 (Version 1)
Quarter: 2014Q3

REPORT INFORMATION
  Report Type: Spontaneous
  Country: US (occurrence: None)
  Receive Date: 20140929
  Receipt Date: 20140929
  Transmission Date: 20150326
  Serious: Yes (Disabling)
  Sender: FDA-Public Use
  Company Number: None

PATIENT
  Age: 34 Year
  Sex: Female
  Weight: 68.04 kg

DRUGS (2)
  1. EFFEXOR XR [Suspect]
     Active Substance: VENLAFAXINE HYDROCHLORIDE
     Indication: ANXIETY
     Dosage: 1 PILL ONCE DAILY TAKEN BY MOUTH
     Route: 048
     Dates: start: 20110323, end: 20140310
  2. EFFEXOR XR [Suspect]
     Active Substance: VENLAFAXINE HYDROCHLORIDE
     Indication: STRESS AT WORK
     Dosage: 1 PILL ONCE DAILY TAKEN BY MOUTH
     Route: 048
     Dates: start: 20110323, end: 20140310

REACTIONS (15)
  - Quality of life decreased [None]
  - Dizziness [None]
  - Hyperhidrosis [None]
  - Feeling of body temperature change [None]
  - Nausea [None]
  - Headache [None]
  - Insomnia [None]
  - Paraesthesia [None]
  - Drug withdrawal syndrome [None]
  - Fatigue [None]
  - Myalgia [None]
  - Arthralgia [None]
  - Anxiety [None]
  - Palpitations [None]
  - Malaise [None]

NARRATIVE: CASE EVENT DATE: 20140928
